FAERS Safety Report 25922554 (Version 1)
Quarter: 2025Q4

REPORT INFORMATION
  Report Type: Spontaneous
  Country: CN (occurrence: CN)
  Receive Date: 20251015
  Receipt Date: 20251015
  Transmission Date: 20260117
  Serious: Yes (Other)
  Sender: ALEXION PHARMACEUTICALS
  Company Number: CN-AstraZeneca-CH-00952764A

PATIENT
  Age: 64 Year
  Sex: Female

DRUGS (1)
  1. TAGRISSO [Suspect]
     Active Substance: OSIMERTINIB
     Indication: Pulmonary mass
     Dosage: UNK
     Route: 065

REACTIONS (18)
  - Lumbar vertebral fracture [Unknown]
  - Facial nerve neuritis [Unknown]
  - Asthenia [Unknown]
  - Anxiety [Unknown]
  - Hypoaesthesia [Unknown]
  - Mastication disorder [Unknown]
  - Jaw disorder [Unknown]
  - Tooth loss [Unknown]
  - Stiff tongue [Unknown]
  - Facial discomfort [Unknown]
  - Rhinalgia [Unknown]
  - Weight decreased [Unknown]
  - Onychoclasis [Unknown]
  - Vasculitis [Unknown]
  - Muscular weakness [Unknown]
  - Feeding disorder [Unknown]
  - Musculoskeletal stiffness [Unknown]
  - Facial pain [Unknown]
